FAERS Safety Report 5296541-8 (Version None)
Quarter: 2007Q2

REPORT INFORMATION
  Report Type: 
  Country: None (occurrence: None)
  Receive Date: 20070413
  Receipt Date: 20070403
  Transmission Date: 20071010
  Serious: Yes (Other)
  Sender: FDA-Public Use
  Company Number: SE-PFIZER INC-2007026296

PATIENT
  Sex: Male

DRUGS (2)
  1. VIAGRA [Suspect]
     Indication: ERECTILE DYSFUNCTION
     Route: 048
     Dates: start: 20010101, end: 20070201
  2. DICLOFENAC [Concomitant]
     Dates: start: 20051101, end: 20060201

REACTIONS (6)
  - DRUG INEFFECTIVE [None]
  - FIBROMYALGIA [None]
  - INFECTION [None]
  - KNEE ARTHROPLASTY [None]
  - NIGHT BLINDNESS [None]
  - VISUAL ACUITY REDUCED [None]
